FAERS Safety Report 9750413 (Version 2)
Quarter: 2013Q4

REPORT INFORMATION
  Report Type: Spontaneous
  Country: US (occurrence: US)
  Receive Date: 20131212
  Receipt Date: 20131213
  Transmission Date: 20140711
  Serious: No
  Sender: FDA-Public Use
  Company Number: US-TEVA-397131USA

PATIENT
  Age: 34 Year
  Sex: Female
  Weight: 59.02 kg

DRUGS (4)
  1. PARAGARD 380A [Suspect]
     Indication: CONTRACEPTION
     Route: 015
     Dates: start: 20130220, end: 20130327
  2. LEVOXYL [Concomitant]
     Indication: HYPOTHYROIDISM
  3. DIFFERIN [Concomitant]
     Route: 061
  4. CLINDAMYCIN [Concomitant]
     Route: 061

REACTIONS (2)
  - Device expulsion [Recovered/Resolved]
  - Discomfort [Unknown]
